FAERS Safety Report 21890331 (Version 2)
Quarter: 2023Q1

REPORT INFORMATION
  Report Type: Spontaneous
  Country: US (occurrence: US)
  Receive Date: 20230120
  Receipt Date: 20230308
  Transmission Date: 20230417
  Serious: Yes (Other)
  Sender: FDA-Public Use
  Company Number: US-PFIZER INC-202300028474

PATIENT
  Age: 70 Year
  Sex: Female
  Weight: 58.97 kg

DRUGS (1)
  1. XELJANZ XR [Suspect]
     Active Substance: TOFACITINIB CITRATE
     Indication: Rheumatoid arthritis
     Dosage: UNK

REACTIONS (5)
  - Immunodeficiency [Unknown]
  - Pneumonia [Unknown]
  - Rheumatoid arthritis [Unknown]
  - COVID-19 [Unknown]
  - Sinusitis [Unknown]

NARRATIVE: CASE EVENT DATE: 20220501
